FAERS Safety Report 17394306 (Version 2)
Quarter: 2020Q2

REPORT INFORMATION
  Report Type: Report from Study
  Country: CO (occurrence: CO)
  Receive Date: 20200210
  Receipt Date: 20200427
  Transmission Date: 20200713
  Serious: Yes (Other)
  Sender: FDA-Public Use
  Company Number: CO-ACTELION-A-CH2018-172494

PATIENT
  Age: 66 Year
  Sex: Female
  Weight: 60 kg

DRUGS (3)
  1. TRACLEER [Suspect]
     Active Substance: BOSENTAN
     Dosage: 125 MG, BID
     Route: 048
     Dates: start: 20191127
  2. TRACLEER [Suspect]
     Active Substance: BOSENTAN
     Indication: PULMONARY ARTERIAL HYPERTENSION
     Dosage: 125 MG, BID
     Route: 048
     Dates: start: 20150601
  3. TRACLEER [Suspect]
     Active Substance: BOSENTAN
     Dosage: 125 MG, BID
     Route: 048

REACTIONS (12)
  - Eye operation [Unknown]
  - Fatigue [Recovered/Resolved]
  - Eye irritation [Unknown]
  - Abdominal pain upper [Recovered/Resolved]
  - Syncope [Unknown]
  - Cerebrovascular insufficiency [Unknown]
  - Feeling abnormal [Not Recovered/Not Resolved]
  - Lacrimation increased [Unknown]
  - Dyspnoea [Not Recovered/Not Resolved]
  - Cataract operation [Not Recovered/Not Resolved]
  - Cold sweat [Recovered/Resolved]
  - Unevaluable event [Unknown]

NARRATIVE: CASE EVENT DATE: 201703
